FAERS Safety Report 6143897-X (Version None)
Quarter: 2009Q2

REPORT INFORMATION
  Report Type: 
  Country: None (occurrence: None)
  Receive Date: 20090406
  Receipt Date: 20090326
  Transmission Date: 20091009
  Serious: Yes (Other)
  Sender: FDA-Public Use
  Company Number: PHHY2009NZ09444

PATIENT
  Sex: Male

DRUGS (3)
  1. CLOZARIL [Suspect]
     Indication: SCHIZOPHRENIA
     Dosage: UNK
     Dates: start: 20090210
  2. CLONAZEPAM [Concomitant]
     Dosage: 2 MG DAILY
     Dates: start: 20081015
  3. LEVOTHYROXINE SODIUM [Concomitant]
     Dosage: 100 UG DAILY
     Dates: start: 20080402

REACTIONS (8)
  - COUGH [None]
  - LETHARGY [None]
  - LOWER RESPIRATORY TRACT INFECTION [None]
  - MALAISE [None]
  - MYOCARDITIS [None]
  - NEUTROPHIL COUNT DECREASED [None]
  - PALLOR [None]
  - PYREXIA [None]
